FAERS Safety Report 25537344 (Version 3)
Quarter: 2025Q3

REPORT INFORMATION
  Report Type: Spontaneous
  Country: US (occurrence: US)
  Receive Date: 20250710
  Receipt Date: 20250905
  Transmission Date: 20251021
  Serious: No
  Sender: JOHNSON AND JOHNSON
  Company Number: US-JNJFOC-20250710934

PATIENT
  Age: 68 Year

DRUGS (2)
  1. STELARA [Suspect]
     Active Substance: USTEKINUMAB
     Indication: Psoriatic arthropathy
     Route: 058
  2. STELARA [Suspect]
     Active Substance: USTEKINUMAB
     Indication: Fibromyalgia

REACTIONS (3)
  - Device defective [Unknown]
  - Physical product label issue [Unknown]
  - Inflammation [Unknown]

NARRATIVE: CASE EVENT DATE: 20250708
